FAERS Safety Report 19416177 (Version 1)
Quarter: 2021Q2

REPORT INFORMATION
  Report Type: Spontaneous
  Country: HU (occurrence: HU)
  Receive Date: 20210614
  Receipt Date: 20210614
  Transmission Date: 20210717
  Serious: Yes (Hospitalization, Other)
  Sender: FDA-Public Use
  Company Number: HU-INCYTE CORPORATION-2021IN005254

PATIENT

DRUGS (6)
  1. JAKAVI [Suspect]
     Active Substance: RUXOLITINIB
     Dosage: 40 MG
     Route: 065
     Dates: start: 202102, end: 202102
  2. JAKAVI [Suspect]
     Active Substance: RUXOLITINIB
     Indication: POLYCYTHAEMIA VERA
     Dosage: 40 MG, DAILY
     Route: 065
     Dates: start: 20120711, end: 20200618
  3. ELIQUIS [Concomitant]
     Active Substance: APIXABAN
     Indication: PRODUCT USED FOR UNKNOWN INDICATION
     Dosage: 10 MG, QD
     Route: 065
     Dates: start: 20200719
  4. ASA [Concomitant]
     Active Substance: ASPIRIN
     Indication: POLYCYTHAEMIA VERA
     Route: 065
  5. JAKAVI [Suspect]
     Active Substance: RUXOLITINIB
     Dosage: 40 MG, DAILY
     Route: 065
     Dates: start: 20200805
  6. JAKAVI [Suspect]
     Active Substance: RUXOLITINIB
     Dosage: 30 UNK
     Route: 065
     Dates: end: 202102

REACTIONS (22)
  - Diarrhoea [Unknown]
  - Splenomegaly [Recovering/Resolving]
  - Deep vein thrombosis [Unknown]
  - Gastroenteritis viral [Unknown]
  - Blood lactate dehydrogenase increased [Unknown]
  - Myelofibrosis [Unknown]
  - Platelet count decreased [Unknown]
  - White blood cell count decreased [Unknown]
  - Coagulation test abnormal [Unknown]
  - Haematoma [Unknown]
  - Stasis dermatitis [Unknown]
  - Anaemia [Unknown]
  - Post thrombotic syndrome [Unknown]
  - Pancytopenia [Recovering/Resolving]
  - Thrombophlebitis [Unknown]
  - Herpes zoster [Unknown]
  - Blood triglycerides increased [Unknown]
  - Skin ulcer [Unknown]
  - Blood cholesterol increased [Unknown]
  - COVID-19 [Recovered/Resolved]
  - Haemoglobin decreased [Recovering/Resolving]
  - Hyperlipidaemia [Unknown]

NARRATIVE: CASE EVENT DATE: 201803
